FAERS Safety Report 15546886 (Version 10)
Quarter: 2022Q4

REPORT INFORMATION
  Report Type: Other
  Country: CA (occurrence: CA)
  Receive Date: 20181024
  Receipt Date: 20221223
  Transmission Date: 20230113
  Serious: Yes (Hospitalization, Other)
  Sender: FDA-Public Use
  Company Number: CA-GLENMARK PHARMACEUTICALS-2018GMK037856

PATIENT

DRUGS (19)
  1. URSODIOL [Suspect]
     Active Substance: URSODIOL
     Indication: Product used for unknown indication
     Dosage: UNK
     Route: 065
  2. URSODIOL [Suspect]
     Active Substance: URSODIOL
     Dosage: UNK (FORMULATION: TABLET)
     Route: 065
  3. CYCLOBENZAPRINE [Suspect]
     Active Substance: CYCLOBENZAPRINE
     Indication: Product used for unknown indication
     Dosage: UNK
     Route: 064
  4. DOCUSATE SODIUM [Suspect]
     Active Substance: DOCUSATE SODIUM
     Indication: Product used for unknown indication
     Dosage: UNK
     Route: 065
  5. DULOXETINE HYDROCHLORIDE [Suspect]
     Active Substance: DULOXETINE HYDROCHLORIDE
     Indication: Depression
     Dosage: 90 MILLIGRAM, OD
     Route: 065
  6. FERROUS SULFATE [Suspect]
     Active Substance: FERROUS SULFATE
     Indication: Product used for unknown indication
     Dosage: UNK
     Route: 065
  7. INSULIN NOS [Suspect]
     Active Substance: INSULIN NOS
     Indication: Product used for unknown indication
     Dosage: UNK
     Route: 048
  8. LEVOTHYROXINE [Suspect]
     Active Substance: LEVOTHYROXINE
     Indication: Product used for unknown indication
     Dosage: UNK
     Route: 065
  9. CONCERTA [Suspect]
     Active Substance: METHYLPHENIDATE HYDROCHLORIDE
     Indication: Attention deficit hyperactivity disorder
     Dosage: 36 MG, OD
     Route: 065
  10. OMEPRAZOLE [Suspect]
     Active Substance: OMEPRAZOLE
     Indication: Product used for unknown indication
     Dosage: UNK
     Route: 048
  11. DOMPERIDONE [Suspect]
     Active Substance: DOMPERIDONE
     Indication: Lactation stimulation therapy
     Dosage: 20 MG, QID
     Route: 065
  12. DOMPERIDONE [Suspect]
     Active Substance: DOMPERIDONE
     Indication: Breast feeding
     Dosage: 20 MEQ, UNK
     Route: 065
  13. DOMPERIDONE [Suspect]
     Active Substance: DOMPERIDONE
     Indication: Lactation disorder
     Dosage: 20 MILLIGRAM, QID (1 EVERY 6 HOURS)
     Route: 065
  14. METHYLPHENIDATE HYDROCHLORIDE [Suspect]
     Active Substance: METHYLPHENIDATE HYDROCHLORIDE
     Indication: Attention deficit hyperactivity disorder
     Dosage: 36 MILLIGRAM, OD
     Route: 065
  15. INSULIN NOS [Suspect]
     Active Substance: INSULIN NOS
     Indication: Product used for unknown indication
     Dosage: UNK
     Route: 048
  16. LEVOTHYROXINE [Suspect]
     Active Substance: LEVOTHYROXINE
     Indication: Product used for unknown indication
     Dosage: UNK
     Route: 065
  17. FERROUS SULFATE ANHYDROUS [Suspect]
     Active Substance: FERROUS SULFATE ANHYDROUS
     Indication: Product used for unknown indication
     Dosage: UNK
     Route: 065
  18. DOCUSATE SODIUM [Suspect]
     Active Substance: DOCUSATE SODIUM
     Indication: Product used for unknown indication
     Dosage: UNK
     Route: 065
  19. CYCLOBENZAPRINE [Suspect]
     Active Substance: CYCLOBENZAPRINE
     Indication: Product used for unknown indication
     Route: 065

REACTIONS (9)
  - Pre-eclampsia [Recovered/Resolved]
  - Cholestasis [Unknown]
  - Hypothyroidism [Recovered/Resolved]
  - Off label use [Unknown]
  - Lactation disorder [Recovered/Resolved]
  - Blood pressure increased [Recovered/Resolved]
  - Maternal exposure during breast feeding [Unknown]
  - Exposure during pregnancy [Unknown]
  - Exposure via breast milk [Unknown]
